FAERS Safety Report 5131121-6 (Version None)
Quarter: 2006Q4

REPORT INFORMATION
  Report Type: 
  Country: None (occurrence: None)
  Receive Date: 20061016
  Receipt Date: 20060901
  Transmission Date: 20070319
  Serious: Yes (Hospitalization)
  Sender: FDA-Public Use
  Company Number: 2006123997

PATIENT
  Age: 69 Year
  Sex: Male
  Weight: 69 kg

DRUGS (9)
  1. AMLODIPINE [Suspect]
     Dosage: 10 MG (EVERY DAY), ORAL
     Route: 048
     Dates: start: 20050623, end: 20050707
  2. NICORANDIL (NICORANDIL) [Suspect]
     Dosage: 20 MG (BID), ORAL
     Route: 048
     Dates: start: 20050623, end: 20050707
  3. URAPIDIL [Concomitant]
  4. ATORVASTATIN CALCIUM [Concomitant]
  5. ALLOPURINOL [Concomitant]
  6. PENTOXIFYLLINE [Concomitant]
  7. DILTIAZEM HYDROCHLORIDE [Concomitant]
  8. CLOPIDOGREL [Concomitant]
  9. ASPIRIN [Concomitant]

REACTIONS (4)
  - APHTHOUS STOMATITIS [None]
  - CONDITION AGGRAVATED [None]
  - DYSPNOEA [None]
  - OEDEMA MOUTH [None]
